FAERS Safety Report 17148657 (Version 1)
Quarter: 2019Q4

REPORT INFORMATION
  Report Type: Spontaneous
  Country: BR (occurrence: BR)
  Receive Date: 20191213
  Receipt Date: 20191213
  Transmission Date: 20200122
  Serious: Yes (Hospitalization, Other)
  Sender: FDA-Public Use
  Company Number: BR-AMGEN-BRASP2019206774

PATIENT
  Age: 71 Year
  Sex: Female

DRUGS (1)
  1. ENBREL [Suspect]
     Active Substance: ETANERCEPT
     Indication: PRODUCT USED FOR UNKNOWN INDICATION
     Dosage: UNK
     Route: 065
     Dates: start: 201806, end: 201901

REACTIONS (6)
  - Pneumonia [Unknown]
  - Decreased immune responsiveness [Unknown]
  - Asthenia [Unknown]
  - Pericardial effusion [Unknown]
  - Pleural effusion [Unknown]
  - Drug intolerance [Unknown]
